FAERS Safety Report 7970605-X (Version None)
Quarter: 2011Q4

REPORT INFORMATION
  Report Type: 
  Country: None (occurrence: None)
  Receive Date: 20111212
  Receipt Date: 20111202
  Transmission Date: 20120403
  Serious: Yes (Hospitalization)
  Sender: FDA-Public Use
  Company Number: IE-MEDIMMUNE-MEDI-0014092

PATIENT
  Sex: Female

DRUGS (8)
  1. SYNAGIS [Suspect]
     Indication: HEART DISEASE CONGENITAL
     Route: 030
     Dates: start: 20111012, end: 20111012
  2. LANSOPRAZOLE [Concomitant]
  3. FUROSEMIDE SODIUM [Concomitant]
  4. SYNAGIS [Suspect]
     Route: 030
     Dates: start: 20111202, end: 20111202
  5. SPIRONOLACTONE [Concomitant]
  6. PHENOBARBITAL TAB [Concomitant]
  7. ACETYLSALICYLIC ACID SRT [Concomitant]
  8. TINZAPARIN SODIUM [Concomitant]

REACTIONS (2)
  - HOSPITALISATION [None]
  - DRUG INEFFECTIVE [None]
